FAERS Safety Report 21385265 (Version 1)
Quarter: 2022Q3

REPORT INFORMATION
  Report Type: Spontaneous
  Country: IT (occurrence: IT)
  Receive Date: 20220928
  Receipt Date: 20220928
  Transmission Date: 20221026
  Serious: Yes (Other)
  Sender: FDA-Public Use
  Company Number: None

PATIENT
  Age: 39 Year
  Sex: Female

DRUGS (2)
  1. INFLIXIMAB [Suspect]
     Active Substance: INFLIXIMAB
     Indication: Colitis ulcerative
     Dosage: FLIXABI 5 MG/KG INDUCTION CYCLE
     Route: 042
     Dates: start: 20220714, end: 20220912
  2. TICHE [Concomitant]
     Indication: Hypothyroidism
     Dosage: TICHE 125 MCG 1 CP PER DAY
     Route: 048
     Dates: start: 20170817, end: 20220912

REACTIONS (3)
  - Dyspnoea [Recovered/Resolved]
  - Erythema [Recovered/Resolved]
  - Face oedema [Recovered/Resolved]

NARRATIVE: CASE EVENT DATE: 20220912
